FAERS Safety Report 8367205-9 (Version None)
Quarter: 2012Q2

REPORT INFORMATION
  Report Type: 
  Country: None (occurrence: None)
  Receive Date: 20120517
  Receipt Date: 20120510
  Transmission Date: 20120825
  Serious: Yes (Congenital Anomaly, Other)
  Sender: FDA-Public Use
  Company Number: PHHY2012GB041348

PATIENT

DRUGS (4)
  1. MORPHINE [Suspect]
     Route: 064
  2. DIHYDROCODEINE BITARTRATE INJ [Suspect]
     Route: 064
  3. METHADONE HCL [Suspect]
     Route: 064
  4. DIAZEPAM [Suspect]
     Route: 064

REACTIONS (9)
  - CONGENITAL NYSTAGMUS [None]
  - DRUG WITHDRAWAL SYNDROME NEONATAL [None]
  - FOETAL EXPOSURE DURING PREGNANCY [None]
  - DEVELOPMENTAL DELAY [None]
  - OPTIC NERVE HYPOPLASIA [None]
  - MICROCEPHALY [None]
  - STRABISMUS [None]
  - HYPERMETROPIA [None]
  - MYOPIA [None]
